FAERS Safety Report 8400091-7 (Version None)
Quarter: 2012Q2

REPORT INFORMATION
  Report Type: 
  Country: None (occurrence: None)
  Receive Date: 20120531
  Receipt Date: 20120529
  Transmission Date: 20120825
  Serious: Yes (Other)
  Sender: FDA-Public Use
  Company Number: DE-PFIZER INC-2012108277

PATIENT
  Sex: Male
  Weight: 75 kg

DRUGS (3)
  1. LYRICA [Suspect]
     Dosage: 300MGX5, DAILY
  2. METHADONE [Concomitant]
     Indication: DEPENDENCE
  3. DIAZEPAM [Concomitant]

REACTIONS (2)
  - WITHDRAWAL SYNDROME [None]
  - DRUG ABUSE [None]
